FAERS Safety Report 18413404 (Version 4)
Quarter: 2024Q1

REPORT INFORMATION
  Report Type: Spontaneous
  Country: CA (occurrence: None)
  Receive Date: 20201021
  Receipt Date: 20240213
  Transmission Date: 20240409
  Serious: Yes (Hospitalization, Other)
  Sender: FDA-Public Use
  Company Number: 2020SF33475

PATIENT
  Age: 89 Year
  Sex: Female

DRUGS (35)
  1. SYMBICORT [Suspect]
     Active Substance: BUDESONIDE\FORMOTEROL FUMARATE DIHYDRATE
     Indication: Product used for unknown indication
     Dosage: 2DF, 2 EVERY 1 DAYS(TWO TIMES A DAY)
     Route: 055
  2. BUDESONIDE\FORMOTEROL FUMARATE [Suspect]
     Active Substance: BUDESONIDE\FORMOTEROL FUMARATE
     Indication: Product used for unknown indication
     Dosage: 200 MICROGRAM 2 EVERY 1 DAYS(TWO TIMES A DAY)
  3. ATORVASTATIN CALCIUM [Suspect]
     Active Substance: ATORVASTATIN CALCIUM
     Indication: Product used for unknown indication
     Route: 048
  4. CHOLECALCIFEROL [Suspect]
     Active Substance: CHOLECALCIFEROL
     Indication: Product used for unknown indication
     Dosage: 1000.0IU UNKNOWN
     Route: 065
  5. CHLORTHALIDONE [Suspect]
     Active Substance: CHLORTHALIDONE
     Indication: Product used for unknown indication
     Dosage: 25.0MG UNKNOWN
     Route: 048
  6. CYANOCOBALAMIN [Suspect]
     Active Substance: CYANOCOBALAMIN
     Indication: Product used for unknown indication
     Dosage: 1200.0UG UNKNOWN
     Route: 048
  7. CYANOCOBALAMIN [Suspect]
     Active Substance: CYANOCOBALAMIN
     Indication: Product used for unknown indication
     Dosage: 1000.0UG UNKNOWN
     Route: 048
  8. ATROVENT [Suspect]
     Active Substance: IPRATROPIUM BROMIDE
     Indication: Product used for unknown indication
     Route: 065
  9. MOVIPREP [Suspect]
     Active Substance: ASCORBIC ACID\POLYETHYLENE GLYCOL 3350\POTASSIUM CHLORIDE\SODIUM ASCORBATE\SODIUM CHLORIDE\SODIUM SU
     Indication: Product used for unknown indication
     Route: 065
  10. MINERAL OIL [Suspect]
     Active Substance: MINERAL OIL
     Indication: Product used for unknown indication
     Route: 065
  11. SINGULAIR [Suspect]
     Active Substance: MONTELUKAST SODIUM
     Indication: Product used for unknown indication
     Route: 065
  12. MACROBID [Suspect]
     Active Substance: NITROFURANTOIN\NITROFURANTOIN MONOHYDRATE
     Indication: Product used for unknown indication
     Route: 065
  13. ACETAMINOPHEN [Suspect]
     Active Substance: ACETAMINOPHEN
     Indication: Product used for unknown indication
     Dosage: 650.0MG UNKNOWN
     Route: 048
  14. PANTOPRAZOLE [Suspect]
     Active Substance: PANTOPRAZOLE
     Indication: Product used for unknown indication
     Dosage: 40.0MG UNKNOWN
     Route: 048
  15. PREDNISONE [Suspect]
     Active Substance: PREDNISONE
     Indication: Product used for unknown indication
     Route: 065
  16. PREDNISONE [Suspect]
     Active Substance: PREDNISONE
     Indication: Product used for unknown indication
     Route: 065
  17. PREDNISONE [Suspect]
     Active Substance: PREDNISONE
     Indication: Product used for unknown indication
     Route: 065
  18. PREDNISONE [Suspect]
     Active Substance: PREDNISONE
     Indication: Product used for unknown indication
     Route: 065
  19. RIVAROXABAN [Suspect]
     Active Substance: RIVAROXABAN
     Indication: Product used for unknown indication
     Route: 048
  20. RIVAROXABAN [Suspect]
     Active Substance: RIVAROXABAN
     Indication: Product used for unknown indication
     Dosage: 20.0MG UNKNOWN
     Route: 048
  21. XARELTO [Suspect]
     Active Substance: RIVAROXABAN
     Indication: Product used for unknown indication
     Route: 065
  22. XARELTO [Suspect]
     Active Substance: RIVAROXABAN
     Indication: Product used for unknown indication
  23. ALBUTEROL SULFATE [Suspect]
     Active Substance: ALBUTEROL SULFATE
     Indication: Product used for unknown indication
     Route: 065
  24. SENNOSIDES A AND B [Suspect]
     Active Substance: SENNOSIDES A AND B
     Indication: Product used for unknown indication
     Dosage: 17.2MG UNKNOWN
     Route: 048
  25. SERTRALINE HYDROCHLORIDE [Suspect]
     Active Substance: SERTRALINE HYDROCHLORIDE
     Indication: Product used for unknown indication
     Dosage: 50.0MG UNKNOWN
     Route: 048
  26. ZOLOFT [Suspect]
     Active Substance: SERTRALINE HYDROCHLORIDE
     Indication: Product used for unknown indication
     Route: 065
  27. SPIRIVA [Suspect]
     Active Substance: TIOTROPIUM BROMIDE MONOHYDRATE
     Indication: Product used for unknown indication
     Route: 065
  28. TRAZODONE [Suspect]
     Active Substance: TRAZODONE HYDROCHLORIDE
     Indication: Product used for unknown indication
     Route: 065
  29. DESYREL [Suspect]
     Active Substance: TRAZODONE HYDROCHLORIDE
     Indication: Product used for unknown indication
     Route: 065
  30. CASCARA SAGRADA [Suspect]
     Active Substance: FRANGULA PURSHIANA BARK
     Indication: Product used for unknown indication
     Route: 065
  31. DOCUSATE SODIUM [Suspect]
     Active Substance: DOCUSATE SODIUM
     Indication: Product used for unknown indication
     Route: 065
  32. PROPYLENE GLYCOL [Suspect]
     Active Substance: PROPYLENE GLYCOL
     Indication: Product used for unknown indication
     Route: 065
  33. SERTRALINE HYDROCHLORIDE [Suspect]
     Active Substance: SERTRALINE HYDROCHLORIDE
     Indication: Product used for unknown indication
     Dosage: 50.0MG UNKNOWN
     Route: 048
  34. FLEET ENEMA [Suspect]
     Active Substance: SODIUM PHOSPHATE, DIBASIC\SODIUM PHOSPHATE, MONOBASIC
     Indication: Product used for unknown indication
     Dosage: 50.0MG UNKNOWN
     Route: 048
  35. POLYETHYLENE GLYCOL [Suspect]
     Active Substance: POLYETHYLENE GLYCOL
     Indication: Product used for unknown indication
     Route: 065

REACTIONS (20)
  - Asthma [Unknown]
  - Breath sounds abnormal [Unknown]
  - Cardiac murmur [Unknown]
  - Chronic obstructive pulmonary disease [Unknown]
  - Dyspnoea [Unknown]
  - Eosinophilia [Unknown]
  - Lower respiratory tract infection [Unknown]
  - Nasal congestion [Unknown]
  - Oedema peripheral [Unknown]
  - Pneumonia viral [Unknown]
  - Presyncope [Unknown]
  - Productive cough [Unknown]
  - Pulmonary embolism [Unknown]
  - Pyrexia [Unknown]
  - Upper respiratory tract infection [Unknown]
  - Vomiting [Unknown]
  - Wheezing [Unknown]
  - Nausea [Unknown]
  - Drug ineffective [Unknown]
  - Therapeutic product effect incomplete [Unknown]
